FAERS Safety Report 17689240 (Version 1)
Quarter: 2020Q2

REPORT INFORMATION
  Report Type: Report from Study
  Country: IT (occurrence: IT)
  Receive Date: 20200421
  Receipt Date: 20200421
  Transmission Date: 20200714
  Serious: Yes (Other)
  Sender: FDA-Public Use
  Company Number: IT-TEVA-2020-IT-1225785

PATIENT
  Age: 63 Year
  Sex: Female

DRUGS (2)
  1. DIAZEPAM. [Suspect]
     Active Substance: DIAZEPAM
     Dosage: 1 DF
     Route: 048
     Dates: start: 20200116, end: 20200116
  2. ARIPIPRAZOLE. [Concomitant]
     Active Substance: ARIPIPRAZOLE

REACTIONS (2)
  - Hypokinesia [Recovering/Resolving]
  - Asthenia [Recovering/Resolving]

NARRATIVE: CASE EVENT DATE: 20200116
